FAERS Safety Report 7158221-3 (Version None)
Quarter: 2010Q4

REPORT INFORMATION
  Report Type: 
  Country: None (occurrence: None)
  Receive Date: 20101214
  Receipt Date: 20100324
  Transmission Date: 20110411
  Serious: No
  Sender: FDA-Public Use
  Company Number: US-ASTRAZENECA-2010SE13120

PATIENT
  Age: 73 Year
  Sex: Female
  Weight: 79.4 kg

DRUGS (2)
  1. CRESTOR [Suspect]
     Indication: BLOOD CHOLESTEROL
     Dosage: 5 MG, 3 TIMES PER WEEK (M-W-F)
     Route: 048
     Dates: start: 20100101
  2. METOPROLOL(MYL) [Concomitant]
     Indication: SYNCOPE

REACTIONS (2)
  - DIARRHOEA [None]
  - HEADACHE [None]
